FAERS Safety Report 5888886-5 (Version None)
Quarter: 2008Q3

REPORT INFORMATION
  Report Type: 
  Country: None (occurrence: None)
  Receive Date: 20080919
  Receipt Date: 20080912
  Transmission Date: 20090109
  Serious: Yes (Hospitalization, Other)
  Sender: FDA-Public Use
  Company Number: PHHY2008JP15159

PATIENT
  Sex: Male
  Weight: 55 kg

DRUGS (8)
  1. VOLTAREN [Suspect]
     Indication: THORACIC VERTEBRAL FRACTURE
     Dosage: 75 MG/DAY
     Route: 048
     Dates: start: 19970409, end: 20080212
  2. VOLTAREN [Suspect]
     Indication: SPINAL CORD INJURY THORACIC
  3. TERNELIN [Concomitant]
     Dosage: 3 MG, UNK
     Route: 048
     Dates: start: 19970410, end: 20080212
  4. ADALAT [Concomitant]
     Dosage: 20 MG, UNK
     Route: 048
     Dates: start: 19870320
  5. BUP-4 [Concomitant]
     Dosage: 10 MG, UNK
     Route: 048
     Dates: start: 20040721
  6. TAGAMET [Concomitant]
     Dosage: 400 MG, UNK
     Route: 048
     Dates: start: 19870330, end: 20080212
  7. COMESGEN [Concomitant]
     Dosage: 1500 MG, UNK
     Route: 048
     Dates: start: 19970410, end: 20080212
  8. VITAMEDIN [Concomitant]
     Dosage: 100 MG, UNK
     Route: 048
     Dates: start: 19970410, end: 20080212

REACTIONS (6)
  - ABDOMINAL PAIN [None]
  - ABDOMINAL RIGIDITY [None]
  - GASTROINTESTINAL OEDEMA [None]
  - ILEECTOMY [None]
  - PERITONITIS [None]
  - SMALL INTESTINAL PERFORATION [None]
